FAERS Safety Report 5589006-7 (Version None)
Quarter: 2008Q1

REPORT INFORMATION
  Report Type: 
  Country: None (occurrence: None)
  Receive Date: 20080111
  Receipt Date: 20080102
  Transmission Date: 20080703
  Serious: Yes (Other)
  Sender: FDA-Public Use
  Company Number: US-ABBOTT-08P-163-0432037-00

PATIENT
  Age: 63 Year
  Sex: Female

DRUGS (2)
  1. VALPROIC ACID [Suspect]
     Indication: CONVULSION
  2. NEURONTIN [Concomitant]
     Indication: CONVULSION

REACTIONS (1)
  - MYELODYSPLASTIC SYNDROME [None]
